FAERS Safety Report 8318049-5 (Version None)
Quarter: 2012Q2

REPORT INFORMATION
  Report Type: 
  Country: None (occurrence: None)
  Receive Date: 20120427
  Receipt Date: 20120419
  Transmission Date: 20120825
  Serious: Yes (Other)
  Sender: FDA-Public Use
  Company Number: US-JNJFOC-20120410111

PATIENT
  Age: 71 Year
  Sex: Male

DRUGS (4)
  1. XARELTO [Suspect]
     Indication: ATRIAL FIBRILLATION
     Route: 048
  2. METFORMIN HCL [Concomitant]
     Indication: DIABETES MELLITUS
  3. UNSPECIFIED BLOOD PRESSURE MEDS [Concomitant]
  4. OTHER THERAPEUTIC MEDICATION [Concomitant]

REACTIONS (1)
  - ARTERIAL THROMBOSIS [None]
